FAERS Safety Report 8212641-4 (Version None)
Quarter: 2012Q1

REPORT INFORMATION
  Report Type: 
  Country: None (occurrence: None)
  Receive Date: 20120315
  Receipt Date: 20120307
  Transmission Date: 20120608
  Serious: Yes (Other)
  Sender: FDA-Public Use
  Company Number: US-BAYER-2011-093614

PATIENT
  Age: 47 Year
  Sex: Female
  Weight: 58.957 kg

DRUGS (4)
  1. DROSPIRENONE AND ETHINYL ESTRADIOL [Suspect]
     Dosage: UNK
     Dates: start: 20081001, end: 20090801
  2. ANTIHISTAMINES [Concomitant]
  3. SPIRONOLACTONE [Concomitant]
     Dosage: UNK
     Dates: start: 20090601, end: 20090714
  4. YASMIN [Suspect]
     Indication: CONTRACEPTION
     Dosage: 3-0.03MG
     Route: 048
     Dates: start: 20020401, end: 20081001

REACTIONS (6)
  - PAIN [None]
  - GENERAL PHYSICAL HEALTH DETERIORATION [None]
  - EMOTIONAL DISTRESS [None]
  - CEREBROVASCULAR ACCIDENT [None]
  - INJURY [None]
  - ANXIETY [None]
